FAERS Safety Report 20923937 (Version 3)
Quarter: 2022Q3

REPORT INFORMATION
  Report Type: Spontaneous
  Country: US (occurrence: US)
  Receive Date: 20220607
  Receipt Date: 20220726
  Transmission Date: 20221027
  Serious: No
  Sender: FDA-Public Use
  Company Number: US-PFIZER INC-202200798950

PATIENT
  Age: 75 Year
  Sex: Female
  Weight: 91.63 kg

DRUGS (1)
  1. PAXLOVID [Suspect]
     Active Substance: NIRMATRELVIR\RITONAVIR
     Indication: COVID-19 treatment
     Dosage: 100MG RITONAVIR AND 300MG NIRMATRELVIR, 2X/DAY (EVERY 12 HOURS, MORNING AND NIGHT)
     Route: 048
     Dates: start: 20220531

REACTIONS (3)
  - Diarrhoea [Not Recovered/Not Resolved]
  - Dysphonia [Not Recovered/Not Resolved]
  - Dysgeusia [Not Recovered/Not Resolved]

NARRATIVE: CASE EVENT DATE: 20220531
